FAERS Safety Report 6864692-X (Version None)
Quarter: 2010Q3

REPORT INFORMATION
  Report Type: 
  Country: None (occurrence: None)
  Receive Date: 20100721
  Receipt Date: 20080402
  Transmission Date: 20110219
  Serious: Yes (Other)
  Sender: FDA-Public Use
  Company Number: US-PFIZER INC-2008030390

PATIENT
  Sex: Female
  Weight: 46.363 kg

DRUGS (5)
  1. CHANTIX [Suspect]
     Indication: SMOKING CESSATION THERAPY
     Dates: start: 20070101, end: 20080301
  2. TENORETIC 100 [Concomitant]
  3. EFFEXOR [Concomitant]
  4. POTASSIUM CHLORIDE [Concomitant]
  5. MONTELUKAST SODIUM [Concomitant]

REACTIONS (1)
  - BLOOD PRESSURE INCREASED [None]
